FAERS Safety Report 18005475 (Version 2)
Quarter: 2020Q3

REPORT INFORMATION
  Report Type: Spontaneous
  Country: FR (occurrence: FR)
  Receive Date: 20200709
  Receipt Date: 20200722
  Transmission Date: 20201103
  Serious: Yes (Hospitalization, Other)
  Sender: FDA-Public Use
  Company Number: FR-009507513-2007FRA002130

PATIENT
  Sex: Female

DRUGS (1)
  1. NEXPLANON [Suspect]
     Active Substance: ETONOGESTREL
     Dosage: 1 IMPLANT
     Route: 059
     Dates: start: 20190114

REACTIONS (4)
  - Abdominal pain lower [Unknown]
  - Polymenorrhoea [Unknown]
  - COVID-19 pneumonia [Unknown]
  - Menorrhagia [Unknown]

NARRATIVE: CASE EVENT DATE: 202003
